FAERS Safety Report 25612436 (Version 2)
Quarter: 2025Q3

REPORT INFORMATION
  Report Type: Spontaneous
  Country: CN (occurrence: CN)
  Receive Date: 20250728
  Receipt Date: 20250731
  Transmission Date: 20251021
  Serious: Yes (Death)
  Sender: PFIZER
  Company Number: CN-PFIZER INC-PV202500089925

PATIENT
  Sex: Female

DRUGS (1)
  1. LORBRENA [Suspect]
     Active Substance: LORLATINIB
     Dosage: 100 MG, QD
     Route: 048
     Dates: start: 20250618, end: 20250715

REACTIONS (1)
  - Azotaemia [Fatal]
